FAERS Safety Report 8899408 (Version 2)
Quarter: 2012Q4

REPORT INFORMATION
  Report Type: 
  Country: US (occurrence: US)
  Receive Date: 20121109
  Receipt Date: 20121206
  Transmission Date: 20130627
  Serious: Yes (Hospitalization, Other)
  Sender: FDA-Public Use
  Company Number: US-PFIZER INC-2012279322

PATIENT
  Age: 72 Year
  Sex: Female
  Weight: 74.83 kg

DRUGS (7)
  1. CELEBREX [Suspect]
     Indication: ARTHRITIS
     Dosage: 200 mg, daily
     Dates: end: 201210
  2. WARFARIN [Interacting]
     Indication: ANTICOAGULANT THERAPY
     Dosage: UNK (7.5mg or 5mg ), daily
     Dates: start: 201209
  3. CITALOPRAM [Concomitant]
     Indication: DEPRESSION
     Dosage: 20 mg, daily
     Dates: start: 201210
  4. CLORAZEPATE [Concomitant]
     Indication: ANXIETY
     Dosage: 7.5 mg, 2x/day
  5. LISINOPRIL [Concomitant]
     Indication: BLOOD PRESSURE HIGH
     Dosage: 20 mg, 2x/day
  6. GABAPENTIN [Concomitant]
     Indication: NERVOUS SYSTEM DISORDER
     Dosage: 300 mg, 3x/day
  7. PAXIL [Concomitant]
     Indication: DEPRESSION
     Dosage: UNK
     Dates: end: 201210

REACTIONS (10)
  - Apparent death [Unknown]
  - Thrombosis [Unknown]
  - Blood test abnormal [Recovered/Resolved]
  - Blood disorder [Unknown]
  - Heart rate increased [Recovered/Resolved]
  - Mutism [Recovered/Resolved]
  - Activities of daily living impaired [Unknown]
  - Oedema peripheral [Unknown]
  - Back disorder [Unknown]
  - Drug interaction [Unknown]
